FAERS Safety Report 20056970 (Version 2)
Quarter: 2021Q4

REPORT INFORMATION
  Report Type: Report from Study
  Country: IT (occurrence: IT)
  Receive Date: 20211111
  Receipt Date: 20211231
  Transmission Date: 20220303
  Serious: Yes (Other)
  Sender: FDA-Public Use
  Company Number: None

PATIENT
  Age: 59 Year
  Sex: Female
  Weight: 63 kg

DRUGS (7)
  1. PEMETREXED DISODIUM [Suspect]
     Active Substance: PEMETREXED DISODIUM
     Indication: Lung adenocarcinoma
     Dosage: 800 MG
     Dates: start: 20201231
  2. ELIQUIS [Concomitant]
     Active Substance: APIXABAN
     Route: 048
  3. DOBETIN [Concomitant]
  4. FOLIC ACID [Concomitant]
     Active Substance: FOLIC ACID
     Route: 048
  5. KEYTRUDA [Concomitant]
     Active Substance: PEMBROLIZUMAB
     Indication: Lung adenocarcinoma
     Dosage: 200 MG
     Route: 042
     Dates: start: 20201231
  6. ONDANSETRON HYDROCHLORIDE [Concomitant]
     Active Substance: ONDANSETRON HYDROCHLORIDE
     Dosage: 8 MG
     Route: 042
  7. DEXAMETHASONE [Concomitant]
     Active Substance: DEXAMETHASONE
     Dosage: 8 MG
     Route: 042

REACTIONS (3)
  - Hypokalaemia [Recovered/Resolved]
  - Asthenia [Recovered/Resolved]
  - Anaemia [Recovered/Resolved]

NARRATIVE: CASE EVENT DATE: 20210521
